FAERS Safety Report 8911089 (Version 2)
Quarter: 2013Q1

REPORT INFORMATION
  Report Type: Spontaneous
  Country: DK (occurrence: DK)
  Receive Date: 20121115
  Receipt Date: 20130222
  Transmission Date: 20140127
  Serious: Yes (Other)
  Sender: FDA-Public Use
  Company Number: DK-JNJFOC-20121106071

PATIENT
  Age: 53 Year
  Sex: Female

DRUGS (2)
  1. SIMPONI [Suspect]
     Indication: SPONDYLOARTHROPATHY
     Route: 058
     Dates: start: 20120418, end: 20120901
  2. SIMPONI [Suspect]
     Indication: SPONDYLOARTHROPATHY
     Route: 058
     Dates: start: 20110322, end: 20110729

REACTIONS (1)
  - Invasive ductal breast carcinoma [Not Recovered/Not Resolved]
